FAERS Safety Report 18335244 (Version 1)
Quarter: 2020Q4

REPORT INFORMATION
  Report Type: Report from Study
  Country: IT (occurrence: IT)
  Receive Date: 20201001
  Receipt Date: 20201001
  Transmission Date: 20210113
  Serious: Yes (Death)
  Sender: FDA-Public Use
  Company Number: IT-PFIZER INC-2020378670

PATIENT

DRUGS (4)
  1. IDARUBICIN HCL [Suspect]
     Active Substance: IDARUBICIN HYDROCHLORIDE
     Indication: ACUTE MYELOID LEUKAEMIA
     Dosage: 10 MG/M2, CYCLIC (GIVEN FOR THE FIRST 3 DAYS OF CHEMOTHERAPY) (FLAG-IDA REGIMEN)
     Route: 042
  2. CYTARABINE. [Suspect]
     Active Substance: CYTARABINE
     Indication: ACUTE MYELOID LEUKAEMIA
     Dosage: 2000 MG/M2, CYCLIC (OVER 4 H FOR 5 DAYS, HIGH-DOSE) (FLAG-IDA REGIMEN)
     Route: 042
  3. G-CSF [Suspect]
     Active Substance: GRANULOCYTE COLONY-STIMULATING FACTOR NOS
     Indication: ACUTE MYELOID LEUKAEMIA
     Dosage: 5 UG/KG, CYCLIC (COMMENCED 24 H AFTER COMPLETING CHEMOTHERAPY AND UNTIL NEUTROPHIL REGENERATION)
     Route: 058
  4. FLUDARABINE [Suspect]
     Active Substance: FLUDARABINE PHOSPHATE
     Indication: ACUTE MYELOID LEUKAEMIA
     Dosage: 30 MG/M2, CYCLIC (OVER 30 MIN FOR 5 CONSECUTIVE DAYS) (FLAG-IDA REGIMEN)
     Route: 042

REACTIONS (2)
  - Candida infection [Fatal]
  - Fungaemia [Fatal]
